FAERS Safety Report 19186651 (Version 1)
Quarter: 2021Q2

REPORT INFORMATION
  Report Type: Spontaneous
  Country: US (occurrence: US)
  Receive Date: 20210427
  Receipt Date: 20210427
  Transmission Date: 20210717
  Serious: No
  Sender: FDA-Public Use
  Company Number: US-BEH-2021130650

PATIENT
  Sex: Female

DRUGS (17)
  1. FUROSEMIDE. [Concomitant]
     Active Substance: FUROSEMIDE
  2. ALBUTEROL SULFATE. [Concomitant]
     Active Substance: ALBUTEROL SULFATE
     Dosage: 0.63 MILLIGRAM/3
  3. VITAMIN D [COLECALCIFEROL] [Concomitant]
     Active Substance: CHOLECALCIFEROL
     Dosage: 50000 INTERNATIONAL UNIT
  4. VITAMIN C [Concomitant]
     Active Substance: ASCORBIC ACID
     Dosage: 1000 MILLIGRAM
  5. CIPROFLOXACIN HCL [Concomitant]
     Active Substance: CIPROFLOXACIN HYDROCHLORIDE
  6. HIZENTRA [Suspect]
     Active Substance: HUMAN IMMUNOGLOBULIN G
     Indication: IMMUNODEFICIENCY COMMON VARIABLE
     Dosage: 7 GRAM, QW, TWO SITES
     Route: 058
     Dates: start: 201804
  7. VITAMIN B12 [COBAMAMIDE] [Concomitant]
     Active Substance: COBAMAMIDE
     Dosage: 100 MICROGRAM
  8. VENTOLIN HFA [Concomitant]
     Active Substance: ALBUTEROL SULFATE
  9. SIMVASTATIN. [Concomitant]
     Active Substance: SIMVASTATIN
  10. NAPROSYN [Concomitant]
     Active Substance: NAPROXEN
  11. IPRATROPIUM [Concomitant]
     Active Substance: IPRATROPIUM
     Dosage: 0.002 PERCENT
  12. PREDNISONE. [Concomitant]
     Active Substance: PREDNISONE
     Dosage: 20 MILLIGRAM
  13. VITAMIN B?1 [Concomitant]
     Active Substance: THIAMINE HYDROCHLORIDE
     Dosage: 100 MILLIGRAM
  14. CEFDINIR. [Concomitant]
     Active Substance: CEFDINIR
  15. METHYLPREDNISOLONE. [Concomitant]
     Active Substance: METHYLPREDNISOLONE
  16. LORATADINE. [Concomitant]
     Active Substance: LORATADINE
  17. DILTIAZEM HCL [Concomitant]
     Active Substance: DILTIAZEM HYDROCHLORIDE

REACTIONS (1)
  - Peripheral swelling [Unknown]
